FAERS Safety Report 8250948-5 (Version None)
Quarter: 2012Q2

REPORT INFORMATION
  Report Type: 
  Country: None (occurrence: None)
  Receive Date: 20120402
  Receipt Date: 20120329
  Transmission Date: 20120825
  Serious: No
  Sender: FDA-Public Use
  Company Number: US-BAYER-2012-031614

PATIENT
  Age: 50 Year
  Sex: Female
  Weight: 51.701 kg

DRUGS (3)
  1. GADAVIST [Suspect]
     Indication: MUSCULAR WEAKNESS
  2. GADAVIST [Suspect]
     Indication: NUCLEAR MAGNETIC RESONANCE IMAGING
     Dosage: 5 ML, ONCE
     Route: 042
     Dates: start: 20120328, end: 20120328
  3. GADAVIST [Suspect]
     Indication: AREFLEXIA

REACTIONS (2)
  - PRURITUS [None]
  - URTICARIA [None]
